FAERS Safety Report 5203589-8 (Version None)
Quarter: 2007Q1

REPORT INFORMATION
  Report Type: 
  Country: None (occurrence: None)
  Receive Date: 20070105
  Receipt Date: 20061130
  Transmission Date: 20070707
  Serious: Yes (Death, Other)
  Sender: FDA-Public Use
  Company Number: FSC_0012_2006

PATIENT
  Age: 70 Year
  Sex: Male

DRUGS (2)
  1. VERAPAMIL [Suspect]
     Dosage: 120 MG Q DAY; PO
     Route: 048
  2. DONEPEZIL HYDROCHLORIDE [Suspect]
     Dosage: DF, PO
     Route: 048

REACTIONS (1)
  - ATRIOVENTRICULAR BLOCK [None]
